FAERS Safety Report 5125172-5 (Version None)
Quarter: 2006Q4

REPORT INFORMATION
  Report Type: 
  Country: None (occurrence: None)
  Receive Date: 20061010
  Receipt Date: 20061010
  Transmission Date: 20070319
  Serious: Yes (Hospitalization)
  Sender: FDA-Public Use
  Company Number: None

PATIENT
  Age: 81 Year
  Sex: Male

DRUGS (7)
  1. WARFARIN SODIUM [Suspect]
     Indication: CARDIAC VALVE DISEASE
     Dosage: 7.5 MG QD
     Dates: start: 20000401
  2. DIGOXIN [Suspect]
     Indication: CARDIAC FAILURE CONGESTIVE
     Dosage: 0.25MG QD
     Dates: start: 19981001
  3. ACETAMINOPHEN AND CODEINE PHOSPHATE [Suspect]
     Indication: PAIN
     Dosage: 30/300 Q4 H PRN
     Dates: start: 20060727
  4. GLYBURIDE [Concomitant]
  5. FOSINOPRIL SODIUM [Concomitant]
  6. GABAPENTIN [Concomitant]
  7. TAMSULOSIN HCL [Concomitant]

REACTIONS (2)
  - DRUG TOXICITY [None]
  - MENTAL STATUS CHANGES [None]
